FAERS Safety Report 5868743-0 (Version None)
Quarter: 2008Q3

REPORT INFORMATION
  Report Type: 
  Country: None (occurrence: None)
  Receive Date: 20080903
  Receipt Date: 20080715
  Transmission Date: 20090109
  Serious: Yes (Other)
  Sender: FDA-Public Use
  Company Number: US-BAXTER-2008BH007404

PATIENT
  Age: 62 Year
  Sex: Female
  Weight: 102 kg

DRUGS (9)
  1. HEPARIN SODIUM INJECTION [Suspect]
     Indication: ANTICOAGULANT THERAPY
     Route: 042
     Dates: start: 20080110, end: 20080110
  2. HEPARIN SODIUM INJECTION [Suspect]
     Dosage: DOSE UNIT:UNKNOWN
     Route: 065
     Dates: start: 20080110, end: 20080110
  3. HEPARIN SODIUM INJECTION [Suspect]
     Route: 058
     Dates: start: 20080110, end: 20080110
  4. HEPARIN SODIUM INJECTION [Suspect]
     Dosage: DOSE UNIT:UNKNOWN
     Route: 065
     Dates: start: 20080121, end: 20080121
  5. HEPARIN SODIUM INJECTION [Suspect]
     Route: 058
     Dates: start: 20080110, end: 20080116
  6. HEPARIN SODIUM INJECTION [Suspect]
     Dosage: DOSE UNIT:UNKNOWN
     Route: 065
     Dates: start: 20080116, end: 20080116
  7. HEPARIN LOCK-FLUSH [Suspect]
     Indication: ANTICOAGULANT THERAPY
     Dosage: DOSE UNIT:UNKNOWN
     Route: 065
     Dates: start: 20080101, end: 20080101
  8. HEPARIN [Suspect]
     Dosage: DOSE UNIT:UNKNOWN
     Route: 065
     Dates: start: 20080116, end: 20080120
  9. PREMARIN [Concomitant]
     Indication: DRUG USE FOR UNKNOWN INDICATION
     Dosage: DOSE UNIT:UNKNOWN
     Route: 065

REACTIONS (5)
  - ARTERIAL THROMBOSIS [None]
  - COMPLICATIONS OF TRANSPLANTED KIDNEY [None]
  - HEPARIN-INDUCED THROMBOCYTOPENIA [None]
  - RENAL INFARCT [None]
  - VENOUS THROMBOSIS [None]
